FAERS Safety Report 4383267-8 (Version None)
Quarter: 2004Q2

REPORT INFORMATION
  Report Type: 
  Country: None (occurrence: None)
  Receive Date: 20040622
  Receipt Date: 20040622
  Transmission Date: 20050107
  Serious: Yes (Hospitalization, Other)
  Sender: FDA-Public Use
  Company Number: None

PATIENT
  Age: 44 Year
  Sex: Male

DRUGS (3)
  1. SIMVASTATIN 80 MG PO QHS (GENERIC) [Suspect]
     Indication: HYPERLIPIDAEMIA
     Dosage: 80 MG PO QHS
     Route: 048
     Dates: start: 20030708
  2. FLUOXETINE [Concomitant]
  3. VICODIN [Concomitant]

REACTIONS (2)
  - DRUG INTERACTION [None]
  - MYOSITIS [None]
